FAERS Safety Report 6413458-3 (Version None)
Quarter: 2009Q4

REPORT INFORMATION
  Report Type: 
  Country: None (occurrence: None)
  Receive Date: 20091020
  Receipt Date: 20091015
  Transmission Date: 20100525
  Serious: Yes (Death, Hospitalization)
  Sender: FDA-Public Use
  Company Number: 2009SP027489

PATIENT
  Age: 66 Year
  Sex: Female
  Weight: 41.8 kg

DRUGS (11)
  1. TEMOZOLOMIDE [Suspect]
     Indication: GLIOBLASTOMA
     Dosage: 100 MG;QD
     Dates: start: 20070801, end: 20071001
  2. RADIOTHERAPY [Concomitant]
  3. FORTECORTIN [Concomitant]
  4. ATACAND [Concomitant]
  5. FEMOSTON [Concomitant]
  6. MAGNESIUM [Concomitant]
  7. FALKAMIN [Concomitant]
  8. URSODIOL [Concomitant]
  9. KONAKION [Concomitant]
  10. KALINOR [Concomitant]
  11. L-THYROXIN [Concomitant]

REACTIONS (10)
  - AREFLEXIA [None]
  - ASTERIXIS [None]
  - BRAIN HERNIATION [None]
  - CEREBELLAR SYNDROME [None]
  - CEREBRAL HAEMORRHAGE [None]
  - CHOLESTASIS [None]
  - DECREASED VIBRATORY SENSE [None]
  - DISORIENTATION [None]
  - GRAND MAL CONVULSION [None]
  - WEIGHT DECREASED [None]
